FAERS Safety Report 8843089 (Version 5)
Quarter: 2013Q1

REPORT INFORMATION
  Report Type: Spontaneous
  Country: US (occurrence: US)
  Receive Date: 20121016
  Receipt Date: 20130114
  Transmission Date: 20140127
  Serious: Yes (Other)
  Sender: FDA-Public Use
  Company Number: US-PFIZER INC-2012254783

PATIENT
  Age: 58 Year
  Sex: Female

DRUGS (6)
  1. LYRICA [Suspect]
     Dosage: 150 MG DAILY
  2. ESTROVEN [Concomitant]
     Dosage: UNK
  3. B12 [Concomitant]
     Dosage: 2000 MG DAILY
  4. EQUATE [Concomitant]
     Dosage: 500 MG
  5. ACETAMINOPHEN [Concomitant]
     Dosage: 500 MG
  6. ASA [Concomitant]
     Dosage: 81 MG

REACTIONS (2)
  - Fall [Unknown]
  - Injury [Unknown]
